FAERS Safety Report 16230249 (Version 1)
Quarter: 2019Q2

REPORT INFORMATION
  Report Type: Spontaneous
  Country: US (occurrence: US)
  Receive Date: 20190423
  Receipt Date: 20190423
  Transmission Date: 20190711
  Serious: No
  Sender: FDA-Public Use
  Company Number: US-FOUNDATIONCONSUMERHC-2019-US-001648

PATIENT
  Age: 25 Year
  Sex: Female
  Weight: 95 kg

DRUGS (5)
  1. CURCUMIN [Concomitant]
     Active Substance: CURCUMIN
  2. HAIR GROWTH VITAMIN [Concomitant]
  3. AFTERA [Suspect]
     Active Substance: LEVONORGESTREL
     Indication: CONTRACEPTION
     Dosage: 1.5 MG X 3-4 TIMES
     Route: 048
     Dates: start: 20190109, end: 20190123
  4. VEGAN VITAMIN B12 [Concomitant]
  5. PROBIOTIC [Concomitant]
     Active Substance: PROBIOTICS NOS

REACTIONS (2)
  - Vomiting [Recovered/Resolved]
  - Intentional product misuse [Unknown]

NARRATIVE: CASE EVENT DATE: 20190109
